FAERS Safety Report 8292220-3 (Version None)
Quarter: 2012Q2

REPORT INFORMATION
  Report Type: 
  Country: None (occurrence: None)
  Receive Date: 20120417
  Receipt Date: 20120409
  Transmission Date: 20120825
  Serious: Yes (Other)
  Sender: FDA-Public Use
  Company Number: US-BAYER-2012-034573

PATIENT
  Age: 81 Year
  Sex: Male

DRUGS (4)
  1. LOVENOX [Concomitant]
  2. ASPIRIN [Suspect]
  3. METOPROLOL TARTRATE [Concomitant]
  4. AMLODIPINE BESYLATE [Concomitant]

REACTIONS (1)
  - HAEMORRHAGE [None]
